FAERS Safety Report 16886038 (Version 14)
Quarter: 2019Q4

REPORT INFORMATION
  Report Type: Spontaneous
  Country: JP (occurrence: JP)
  Receive Date: 20191004
  Receipt Date: 20191211
  Transmission Date: 20200122
  Serious: Yes (Other)
  Sender: FDA-Public Use
  Company Number: JP-009507513-1909JPN012024

PATIENT
  Sex: Female

DRUGS (8)
  1. ESCITALOPRAM OXALATE. [Concomitant]
     Active Substance: ESCITALOPRAM OXALATE
     Dosage: UNKNOWN
     Route: 048
     Dates: end: 20191007
  2. ARIPIPRAZOLE. [Concomitant]
     Active Substance: ARIPIPRAZOLE
     Indication: RESTLESSNESS
     Dosage: UNK, ONCE
     Route: 048
  3. REFLEX [Suspect]
     Active Substance: MIRTAZAPINE
     Indication: DEPRESSION
     Dosage: DAILY DOSE: 15 MG
     Route: 048
     Dates: start: 201904, end: 20191118
  4. REFLEX [Suspect]
     Active Substance: MIRTAZAPINE
     Dosage: DAILY DOSE: 15 MG
     Route: 048
     Dates: start: 201911
  5. REFLEX [Suspect]
     Active Substance: MIRTAZAPINE
     Indication: ANXIETY DISORDER
     Dosage: DAILY DOSE: 30 MG
     Route: 048
     Dates: start: 20191119, end: 201911
  6. PREDNISOLONE. [Concomitant]
     Active Substance: PREDNISOLONE
     Indication: AUTOIMMUNE DISORDER
     Dosage: UNKNOWN
     Route: 048
  7. CLOTIAZEPAM [Concomitant]
     Active Substance: CLOTIAZEPAM
     Dosage: UNKNOWN
     Route: 048
  8. SERTRALINE HYDROCHLORIDE. [Concomitant]
     Active Substance: SERTRALINE HYDROCHLORIDE
     Dosage: DAILY DOSE: 25 MG
     Route: 048
     Dates: start: 20191008

REACTIONS (22)
  - Limb discomfort [Unknown]
  - Restlessness [Unknown]
  - Insomnia [Unknown]
  - Ear discomfort [Unknown]
  - Thirst [Unknown]
  - Listless [Unknown]
  - Poor quality sleep [Unknown]
  - Nausea [Recovered/Resolved]
  - Sleep disorder [Unknown]
  - Gamma-glutamyltransferase increased [Unknown]
  - Anxiety [Unknown]
  - Somnolence [Unknown]
  - Constipation [Unknown]
  - Restless legs syndrome [Unknown]
  - Abdominal pain upper [Unknown]
  - Akathisia [Unknown]
  - Dyskinesia [Unknown]
  - Off label use [Unknown]
  - Withdrawal syndrome [Unknown]
  - Therapeutic product effect incomplete [Unknown]
  - Hepatitis [Unknown]
  - Headache [Unknown]

NARRATIVE: CASE EVENT DATE: 2019
